FAERS Safety Report 10866525 (Version 1)
Quarter: 2015Q1

REPORT INFORMATION
  Report Type: Spontaneous
  Country: US (occurrence: None)
  Receive Date: 20150220
  Receipt Date: 20150220
  Transmission Date: 20150721
  Serious: Yes (Hospitalization)
  Sender: FDA-Public Use
  Company Number: None

PATIENT
  Age: 43 Year
  Sex: Female
  Weight: 76.66 kg

DRUGS (7)
  1. LIDOCAINE. [Concomitant]
     Active Substance: LIDOCAINE
  2. ROBAXIN [Concomitant]
     Active Substance: METHOCARBAMOL
  3. TOPAMAX [Suspect]
     Active Substance: TOPIRAMATE
     Indication: MIGRAINE
     Dosage: 2 PILLS EACH STRENGTH
     Route: 048
  4. HEADACHE COMPOUND MEDICATION [Concomitant]
  5. CYMBALTA [Concomitant]
     Active Substance: DULOXETINE HYDROCHLORIDE
  6. ATIVAN [Concomitant]
     Active Substance: LORAZEPAM
  7. PROTRIPTYLINE [Concomitant]
     Active Substance: PROTRIPTYLINE

REACTIONS (7)
  - Sepsis [None]
  - Nephrolithiasis [None]
  - Renal failure [None]
  - Blood pressure increased [None]
  - Diarrhoea [None]
  - Vomiting [None]
  - Oxygen saturation decreased [None]

NARRATIVE: CASE EVENT DATE: 20141206
